FAERS Safety Report 21221080 (Version 1)
Quarter: 2022Q3

REPORT INFORMATION
  Report Type: Spontaneous
  Country: JP (occurrence: JP)
  Receive Date: 20220817
  Receipt Date: 20220817
  Transmission Date: 20221027
  Serious: Yes (Hospitalization, Other)
  Sender: FDA-Public Use
  Company Number: JP-BRISTOL-MYERS SQUIBB COMPANY-2022-090201

PATIENT
  Age: 62 Year
  Sex: Male
  Weight: 60.4 kg

DRUGS (2)
  1. DASATINIB [Suspect]
     Active Substance: DASATINIB
     Indication: Chronic myeloid leukaemia
     Route: 048
  2. DASATINIB [Suspect]
     Active Substance: DASATINIB
     Route: 048

REACTIONS (1)
  - Chylothorax [Recovering/Resolving]
